FAERS Safety Report 18594777 (Version 1)
Quarter: 2020Q4

REPORT INFORMATION
  Report Type: Spontaneous
  Country: US (occurrence: US)
  Receive Date: 20201208
  Receipt Date: 20201208
  Transmission Date: 20210114
  Serious: Yes (Hospitalization)
  Sender: FDA-Public Use
  Company Number: None

PATIENT
  Age: 7 Year
  Sex: Female

DRUGS (2)
  1. VIT D 3 [Concomitant]
  2. DEFERASIROX. [Suspect]
     Active Substance: DEFERASIROX
     Indication: THALASSAEMIA BETA
     Route: 048
     Dates: start: 20190912

REACTIONS (1)
  - Blood iron decreased [None]

NARRATIVE: CASE EVENT DATE: 20201127
